FAERS Safety Report 10338648 (Version 1)
Quarter: 2014Q3

REPORT INFORMATION
  Report Type: Spontaneous
  Country: US (occurrence: None)
  Receive Date: 20140722
  Receipt Date: 20140722
  Transmission Date: 20150326
  Serious: Yes (Hospitalization)
  Sender: FDA-Public Use
  Company Number: None

PATIENT
  Age: 46 Year
  Sex: Female
  Weight: 61.6 kg

DRUGS (5)
  1. VINCRISTINE SULFATE. [Suspect]
     Active Substance: VINCRISTINE SULFATE
     Dates: end: 20140628
  2. DAUNORUBICIN [Suspect]
     Active Substance: DAUNORUBICIN
     Dates: end: 20140628
  3. DEXAMETHASONE. [Suspect]
     Active Substance: DEXAMETHASONE
     Dates: end: 20140628
  4. ONCASPAR [Suspect]
     Active Substance: PEGASPARGASE
     Dosage: 3383 UNIT ?
     Dates: end: 20140624
  5. METHOTREXATE [Suspect]
     Active Substance: METHOTREXATE
     Dates: end: 20140714

REACTIONS (2)
  - Thrombosis in device [None]
  - Pulmonary embolism [None]

NARRATIVE: CASE EVENT DATE: 20140718
